FAERS Safety Report 16399004 (Version 2)
Quarter: 2021Q1

REPORT INFORMATION
  Report Type: Spontaneous
  Country: US (occurrence: US)
  Receive Date: 20190606
  Receipt Date: 20210111
  Transmission Date: 20210419
  Serious: Yes (Life-Threatening, Hospitalization)
  Sender: FDA-Public Use
  Company Number: US-MYLANLABS-2019M1053401

PATIENT
  Age: 54 Year
  Sex: Female

DRUGS (1)
  1. BACLOFEN. [Suspect]
     Active Substance: BACLOFEN
     Indication: PRODUCT USED FOR UNKNOWN INDICATION
     Route: 065

REACTIONS (7)
  - Hypotension [Recovering/Resolving]
  - Cardiac arrest [Recovering/Resolving]
  - Mydriasis [Recovering/Resolving]
  - Overdose [Recovering/Resolving]
  - Coma [Recovering/Resolving]
  - Bradycardia [Recovering/Resolving]
  - Sinus arrest [Recovering/Resolving]
